FAERS Safety Report 14735709 (Version 1)
Quarter: 2018Q2

REPORT INFORMATION
  Report Type: Spontaneous
  Country: US (occurrence: US)
  Receive Date: 20180403
  Receipt Date: 20180403
  Transmission Date: 20180711
  Serious: Yes (Disabling)
  Sender: FDA-Public Use
  Company Number: None

PATIENT
  Age: 44 Year
  Sex: Female
  Weight: 56.25 kg

DRUGS (1)
  1. LEVOFLOXACIN 750 MG TAB [Suspect]
     Active Substance: LEVOFLOXACIN
     Indication: PNEUMONIA
     Dosage: ?          QUANTITY:1 TABLET(S);?
     Route: 048
     Dates: start: 20170915, end: 20170915

REACTIONS (5)
  - Muscle tightness [None]
  - Paraesthesia [None]
  - Hypoaesthesia [None]
  - Sensory disturbance [None]
  - Pain in extremity [None]

NARRATIVE: CASE EVENT DATE: 20170915
